FAERS Safety Report 11910691 (Version 1)
Quarter: 2016Q1

REPORT INFORMATION
  Report Type: Spontaneous
  Country: US (occurrence: US)
  Receive Date: 20160112
  Receipt Date: 20160112
  Transmission Date: 20160526
  Serious: No
  Sender: FDA-Public Use
  Company Number: US-BIOGEN-2016BI00169192

PATIENT
  Age: 47 Year
  Sex: Male

DRUGS (2)
  1. PLEGRIDY [Suspect]
     Active Substance: PEGINTERFERON BETA-1A
     Indication: PRODUCT USED FOR UNKNOWN INDICATION
     Route: 065
  2. AMPYRA [Concomitant]
     Active Substance: DALFAMPRIDINE
     Indication: MULTIPLE SCLEROSIS
     Route: 065

REACTIONS (8)
  - Memory impairment [Unknown]
  - Pain in extremity [Unknown]
  - Cognitive disorder [Unknown]
  - Tremor [Unknown]
  - Injection site pain [Unknown]
  - Muscle twitching [Unknown]
  - Drug ineffective [Unknown]
  - Influenza like illness [Unknown]
